FAERS Safety Report 21919796 (Version 2)
Quarter: 2023Q1

REPORT INFORMATION
  Report Type: Spontaneous
  Country: US (occurrence: US)
  Receive Date: 20230127
  Receipt Date: 20230204
  Transmission Date: 20230418
  Serious: No
  Sender: FDA-Public Use
  Company Number: US-TORRENT-00012162

PATIENT

DRUGS (1)
  1. ZOLPIDEM TARTRATE [Suspect]
     Active Substance: ZOLPIDEM TARTRATE
     Indication: Product used for unknown indication
     Dosage: A FULL 10 MG TABLET WITH WATER ON AN EMPTY STOMACH
     Route: 065

REACTIONS (2)
  - Drug ineffective [Unknown]
  - Initial insomnia [Unknown]
